FAERS Safety Report 18233595 (Version 2)
Quarter: 2021Q4

REPORT INFORMATION
  Report Type: Spontaneous
  Country: None (occurrence: JP)
  Receive Date: 20200904
  Receipt Date: 20211208
  Transmission Date: 20220303
  Serious: Yes (Other)
  Sender: FDA-Public Use
  Company Number: JP-DIAMOND PV SERVICES LTD-2089401

PATIENT
  Age: 13 Year
  Sex: Female
  Weight: 52 kg

DRUGS (6)
  1. BYFAVO [Suspect]
     Active Substance: REMIMAZOLAM BESYLATE
     Indication: General anaesthesia
     Route: 042
     Dates: start: 20200807, end: 20200807
  2. CALCIUM CHLORIDE\MAGNESIUM CHLORIDE\POTASSIUM CHLORIDE\SODIUM ACETATE\ [Suspect]
     Active Substance: CALCIUM CHLORIDE\MAGNESIUM CHLORIDE\POTASSIUM CHLORIDE\SODIUM ACETATE\SODIUM CHLORIDE
     Route: 042
     Dates: start: 20200807, end: 20200807
  3. ISOTONIC SODIUM CHLORIDE SOLUTION [Concomitant]
     Active Substance: SODIUM CHLORIDE
     Route: 042
     Dates: start: 20200807, end: 20200807
  4. FENTANYL CITRATE [Concomitant]
     Active Substance: FENTANYL CITRATE
     Route: 065
  5. REMIFENTANIL HYDROCHLORIDE [Concomitant]
     Active Substance: REMIFENTANIL HYDROCHLORIDE
     Route: 042
     Dates: start: 20200807, end: 20200807
  6. Solita-T No.3(Magnesium and potassium) [Concomitant]
     Route: 042
     Dates: start: 20200807

REACTIONS (2)
  - Vascular access site occlusion [Recovered/Resolved]
  - Off label use [Unknown]

NARRATIVE: CASE EVENT DATE: 20200807
